FAERS Safety Report 16890821 (Version 1)
Quarter: 2019Q4

REPORT INFORMATION
  Report Type: Spontaneous
  Country: DE (occurrence: DE)
  Receive Date: 20191007
  Receipt Date: 20191007
  Transmission Date: 20200122
  Serious: Yes (Congenital Anomaly, Other)
  Sender: FDA-Public Use
  Company Number: DE-SA-2019SA271125

PATIENT
  Age: 1 Day
  Sex: Female
  Weight: 3.36 kg

DRUGS (5)
  1. BECLOMETASONE [Concomitant]
     Active Substance: BECLOMETHASONE DIPROPIONATE
     Indication: HYPERSENSITIVITY
     Dosage: 50 [?G/D ]
     Route: 064
  2. FOSTER [Concomitant]
     Active Substance: BECLOMETHASONE\FORMOTEROL
     Indication: ASTHMA
     Dosage: 200 [?G / D (2 STROKES / D)]
     Route: 064
  3. FEXOFENADINE HYDROCHLORIDE. [Suspect]
     Active Substance: FEXOFENADINE HYDROCHLORIDE
     Indication: HYPERSENSITIVITY
     Dosage: 180 [MG / D (IF NECESSARY, APPROX. EVERY 3 DAYS)]
     Route: 064
  4. INFLUVAC TETRA [Concomitant]
     Active Substance: INFLUENZA VIRUS VACCINE QUADRIVALENT TYPE A+B
     Indication: IMMUNISATION
     Dosage: ONCE BETWEEN GW 15 AND 19 1/7.
     Route: 064
  5. ALLERGOSPASMIN [Concomitant]
     Indication: ASTHMA
     Dosage: 1 [MG/D (1-0-1) ] / 2 [MG/D ]
     Route: 064

REACTIONS (3)
  - Ventricular septal defect [Unknown]
  - Foetal exposure during pregnancy [Unknown]
  - Atrial septal defect [Unknown]

NARRATIVE: CASE EVENT DATE: 20190227
